FAERS Safety Report 8222457 (Version 4)
Quarter: 2012Q4

REPORT INFORMATION
  Report Type: 
  Country: US (occurrence: US)
  Receive Date: 20111102
  Receipt Date: 20121219
  Transmission Date: 20130627
  Serious: Yes (Other)
  Sender: FDA-Public Use
  Company Number: US-AMGEN-USASP2011069994

PATIENT
  Age: 0 Year
  Sex: Male

DRUGS (8)
  1. ENBREL [Suspect]
     Dosage: 50 mg, qwk
     Route: 064
     Dates: start: 20050906, end: 20101201
  2. PRENATAL VITAMINS                  /01549301/ [Concomitant]
     Dosage: UNK UNK, qd
     Route: 064
  3. PREDNISONE [Concomitant]
     Dosage: 80 mg, qd
     Route: 064
     Dates: start: 201101, end: 201104
  4. PREDNISONE [Concomitant]
     Dosage: 60 mg, qd
     Route: 048
     Dates: start: 201101, end: 201104
  5. PREDNISONE [Concomitant]
     Dosage: 5 mg, qd
     Route: 048
     Dates: start: 201101, end: 201104
  6. PERCOCET                           /00446701/ [Concomitant]
     Dosage: UNK UNK, prn
     Route: 064
  7. VICODIN [Concomitant]
     Dosage: UNK UNK, prn
     Route: 064
  8. ZOFRAN                             /00955301/ [Concomitant]
     Dosage: UNK
     Route: 064

REACTIONS (1)
  - Hypoglycaemia neonatal [Recovered/Resolved]
